FAERS Safety Report 22167998 (Version 1)
Quarter: 2023Q2

REPORT INFORMATION
  Report Type: Spontaneous
  Country: NL (occurrence: NL)
  Receive Date: 20230403
  Receipt Date: 20230403
  Transmission Date: 20230722
  Serious: Yes (Other)
  Sender: FDA-Public Use
  Company Number: None

PATIENT
  Sex: Female
  Weight: 73 kg

DRUGS (2)
  1. SIMVASTATIN [Suspect]
     Active Substance: SIMVASTATIN
     Indication: Hypercholesterolaemia
     Dosage: 40 MG (MILLIGRAM), SIMVASTATIN TABLET FOR 40MG / BRAND NAME NOT SPECIFIED
     Route: 065
     Dates: start: 20230131, end: 20230214
  2. HYDROCHLOROTHIAZIDE [Concomitant]
     Active Substance: HYDROCHLOROTHIAZIDE
     Indication: Product used for unknown indication
     Dosage: TABLET, 12,5 MG (MILLIGRAM), HYDROCHLOROTHIAZIDE TABLET 12.5MG / BRAND NAME NOT SPECIFIED
     Route: 065

REACTIONS (1)
  - Angioedema [Recovered/Resolved]
